FAERS Safety Report 23350096 (Version 2)
Quarter: 2024Q1

REPORT INFORMATION
  Report Type: Report from Study
  Country: US (occurrence: US)
  Receive Date: 20231229
  Receipt Date: 20240108
  Transmission Date: 20240410
  Serious: Yes (Hospitalization, Other)
  Sender: FDA-Public Use
  Company Number: US-TAKEDA-2023TUS084025

PATIENT
  Sex: Female

DRUGS (3)
  1. VELAGLUCERASE ALFA [Suspect]
     Active Substance: VELAGLUCERASE ALFA
     Indication: Product used for unknown indication
     Dosage: 2800 INTERNATIONAL UNIT, Q2WEEKS
     Route: 042
  2. VELAGLUCERASE ALFA [Suspect]
     Active Substance: VELAGLUCERASE ALFA
     Dosage: 2800 INTERNATIONAL UNIT, Q2WEEKS
     Route: 042
  3. SODIUM CHLORIDE [Suspect]
     Active Substance: SODIUM CHLORIDE
     Indication: Product used for unknown indication
     Dosage: UNK
     Route: 065

REACTIONS (23)
  - Suicidal ideation [Unknown]
  - Vomiting [Unknown]
  - Pyrexia [Unknown]
  - Poor venous access [Unknown]
  - Infusion site erythema [Recovered/Resolved]
  - Infusion site swelling [Recovered/Resolved]
  - Infusion site pain [Not Recovered/Not Resolved]
  - Refusal of treatment by patient [Unknown]
  - Device issue [Recovered/Resolved]
  - Agitation [Unknown]
  - Anger [Unknown]
  - Influenza [Recovering/Resolving]
  - Homicidal ideation [Unknown]
  - Patient uncooperative [Unknown]
  - Eye irritation [Unknown]
  - Medical device site bruise [Unknown]
  - Illness [Unknown]
  - Fatigue [Unknown]
  - Device use issue [Unknown]
  - Accidental exposure to product [Unknown]
  - Product use complaint [Unknown]
  - Product dose omission issue [Unknown]
  - Inappropriate schedule of product administration [Unknown]
